FAERS Safety Report 7824268-4 (Version None)
Quarter: 2011Q4

REPORT INFORMATION
  Report Type: 
  Country: None (occurrence: None)
  Receive Date: 20111019
  Receipt Date: 20111018
  Transmission Date: 20120403
  Serious: Yes (Death, Hospitalization)
  Sender: FDA-Public Use
  Company Number: AU-B.I. PHARMACEUTICALS,INC./RIDGEFIELD-2011-AU-01504AU

PATIENT
  Sex: Female

DRUGS (6)
  1. RANSIM [Concomitant]
  2. PERINDOPRIL ERBUMINE [Concomitant]
  3. PULMICORT [Concomitant]
     Route: 055
  4. PRADAXA [Suspect]
     Indication: ATRIAL FIBRILLATION
     Dosage: 220 MG
     Dates: start: 20110704
  5. BICOR [Concomitant]
  6. CITALOPRAM HYDROBROMIDE [Concomitant]

REACTIONS (5)
  - CEREBROVASCULAR ACCIDENT [None]
  - VAGINAL HAEMORRHAGE [None]
  - FALL [None]
  - ANAL HAEMORRHAGE [None]
  - CONFUSIONAL STATE [None]
